FAERS Safety Report 10065535 (Version 4)
Quarter: 2014Q2

REPORT INFORMATION
  Report Type: Spontaneous
  Country: IT (occurrence: IT)
  Receive Date: 20140408
  Receipt Date: 20140612
  Transmission Date: 20141212
  Serious: Yes (Hospitalization)
  Sender: FDA-Public Use
  Company Number: IT-ACTAVIS-2014-06577

PATIENT
  Age: 58 Year
  Sex: Male

DRUGS (8)
  1. REPAGLINIDE (UNKNOWN) [Suspect]
     Indication: TYPE 2 DIABETES MELLITUS
     Dosage: 4 MG, TOTAL
     Route: 048
     Dates: start: 20131229, end: 20131229
  2. LANTUS [Suspect]
     Indication: TYPE 2 DIABETES MELLITUS
     Dosage: 15 U, DAILY
     Route: 058
     Dates: start: 20131227, end: 20131227
  3. LANTUS [Suspect]
     Dosage: 10 U, DAILY
     Route: 058
     Dates: end: 20131227
  4. ACARBOSE [Concomitant]
     Indication: PRODUCT USED FOR UNKNOWN INDICATION
     Dosage: 100 MG, UNK
     Route: 065
  5. PREDNISONE [Concomitant]
     Indication: PRODUCT USED FOR UNKNOWN INDICATION
     Dosage: UNK
     Route: 065
  6. LORAZEPAM [Concomitant]
     Indication: PRODUCT USED FOR UNKNOWN INDICATION
     Dosage: UNK
     Route: 065
  7. CALCITRIOL [Concomitant]
     Indication: PRODUCT USED FOR UNKNOWN INDICATION
     Dosage: UNK
     Route: 065
  8. OXATOMIDE [Concomitant]
     Indication: CHRONIC OBSTRUCTIVE PULMONARY DISEASE
     Dosage: UNK
     Route: 065

REACTIONS (3)
  - Hypoglycaemia [Recovering/Resolving]
  - Iatrogenic injury [Recovering/Resolving]
  - Drug abuse [Recovering/Resolving]
